FAERS Safety Report 12216337 (Version 2)
Quarter: 2016Q2

REPORT INFORMATION
  Report Type: Other
  Country: JP (occurrence: JP)
  Receive Date: 20160329
  Receipt Date: 20160418
  Transmission Date: 20160815
  Serious: Yes (Life-Threatening, Hospitalization)
  Sender: FDA-Public Use
  Company Number: JP-DEXPHARM-20160385

PATIENT
  Age: 72 Year
  Sex: Male
  Weight: 68 kg

DRUGS (11)
  1. ADRENALINE [Concomitant]
     Active Substance: EPINEPHRINE
  2. DOPAMINE [Concomitant]
     Active Substance: DOPAMINE\DOPAMINE HYDROCHLORIDE
     Dosage: 10 UG/KG/MIN
  3. FENTANYL. [Suspect]
     Active Substance: FENTANYL
  4. ATROPINE. [Concomitant]
     Active Substance: ATROPINE
  5. PROPOFOL. [Suspect]
     Active Substance: PROPOFOL
  6. DILTIAZEM [Suspect]
     Active Substance: DILTIAZEM
     Indication: TACHYCARDIA
  7. NEOSTIGMINE [Concomitant]
     Active Substance: NEOSTIGMINE
  8. ROCURONIUM [Suspect]
     Active Substance: ROCURONIUM BROMIDE
  9. DICLOFENAC [Suspect]
     Active Substance: DICLOFENAC
     Indication: BODY TEMPERATURE INCREASED
     Dosage: DICLOFENAC SODIUM SUPPOSITORY 25 MG
     Route: 054
  10. SEVOFLURANE. [Suspect]
     Active Substance: SEVOFLURANE
  11. ROPIVACAINE [Suspect]
     Active Substance: ROPIVACAINE
     Dosage: 0.5% 6ML/HOUR
     Route: 008

REACTIONS (12)
  - Body temperature increased [Recovered/Resolved with Sequelae]
  - Cardiac arrest [Recovered/Resolved with Sequelae]
  - Tachypnoea [Recovered/Resolved with Sequelae]
  - Coma [Recovered/Resolved with Sequelae]
  - Muscle rigidity [Recovered/Resolved with Sequelae]
  - Pulse absent [Recovered/Resolved with Sequelae]
  - Seizure [Recovered/Resolved with Sequelae]
  - Shock [Recovered/Resolved with Sequelae]
  - Bradycardia [Recovered/Resolved with Sequelae]
  - Hyperhidrosis [Recovered/Resolved with Sequelae]
  - Hypopnoea [Recovered/Resolved with Sequelae]
  - Loss of consciousness [Recovered/Resolved with Sequelae]
